FAERS Safety Report 4598042-9 (Version None)
Quarter: 2005Q2

REPORT INFORMATION
  Report Type: 
  Country: None (occurrence: None)
  Receive Date: 20050207
  Receipt Date: 20040510
  Transmission Date: 20051028
  Serious: Yes (Hospitalization)
  Sender: FDA-Public Use
  Company Number: MEDI-0001771

PATIENT
  Age: 50 Year
  Sex: Male
  Weight: 85.7298 kg

DRUGS (13)
  1. ETHYOL [Suspect]
     Indication: CHEMOTHERAPY
     Dosage: 500 MG, INTRAVENOUS
     Route: 042
     Dates: start: 20040419, end: 20040426
  2. ETHYOL [Suspect]
     Indication: CHEMOTHERAPY
     Dosage: 500 MG, INTRAVENOUS
     Route: 042
     Dates: end: 20040428
  3. TAXOL [Concomitant]
  4. CARBOPLATIN [Concomitant]
  5. FLUOROURACIL [Concomitant]
  6. LEUCOVORIN CALCIUM [Concomitant]
  7. CARAFATE [Concomitant]
  8. OXANDRIN [Concomitant]
  9. LORCET-HD [Concomitant]
  10. WELLBUTRIN [Concomitant]
  11. PREVACID [Concomitant]
  12. MORPHINE SULFATE [Concomitant]
  13. VERSED [Concomitant]

REACTIONS (2)
  - PYREXIA [None]
  - RASH ERYTHEMATOUS [None]
